FAERS Safety Report 14127099 (Version 1)
Quarter: 2017Q4

REPORT INFORMATION
  Report Type: Spontaneous
  Country: DE (occurrence: DE)
  Receive Date: 20171026
  Receipt Date: 20171026
  Transmission Date: 20180321
  Serious: Yes (Hospitalization)
  Sender: FDA-Public Use
  Company Number: DE-AMGEN-DEUSP2017123976

PATIENT
  Age: 48 Year
  Sex: Female

DRUGS (5)
  1. DICLO [Concomitant]
     Active Substance: DICLOFENAC SODIUM
     Dosage: UNK
     Dates: start: 2000, end: 20170818
  2. DEKRISTOL [Concomitant]
     Active Substance: CHOLECALCIFEROL
     Dosage: UNK
     Dates: start: 2008
  3. IBUFLAM [Concomitant]
     Active Substance: IBUPROFEN
     Dosage: UNK
     Dates: start: 201708
  4. EUTHYROX [Concomitant]
     Active Substance: LEVOTHYROXINE SODIUM
     Dosage: UNK
     Dates: start: 2009
  5. ENBREL [Suspect]
     Active Substance: ETANERCEPT
     Indication: PSORIATIC ARTHROPATHY
     Dosage: 50 MG, QWK
     Route: 065
     Dates: start: 2007

REACTIONS (1)
  - Rash [Not Recovered/Not Resolved]

NARRATIVE: CASE EVENT DATE: 201606
